FAERS Safety Report 5065035-7 (Version None)
Quarter: 2006Q3

REPORT INFORMATION
  Report Type: 
  Country: None (occurrence: None)
  Receive Date: 20060726
  Receipt Date: 20060711
  Transmission Date: 20061208
  Serious: Yes (Other)
  Sender: FDA-Public Use
  Company Number: BMRN-2006-032

PATIENT
  Age: 42 Year
  Sex: Male

DRUGS (2)
  1. PREDNISOLONE SODIUM PHOSPHATE [Suspect]
     Indication: ECZEMA
  2. PREDNISOLONE [Suspect]
     Indication: ECZEMA
     Dosage: 50 MG; 100 MG

REACTIONS (5)
  - ACUTE GENERALISED EXANTHEMATOUS PUSTULOSIS [None]
  - LYMPHOCYTE TRANSFORMATION TEST POSITIVE [None]
  - MALAISE [None]
  - NEUTROPHILIA [None]
  - PYREXIA [None]
